FAERS Safety Report 19063712 (Version 1)
Quarter: 2021Q1

REPORT INFORMATION
  Report Type: Spontaneous
  Country: CN (occurrence: CN)
  Receive Date: 20210326
  Receipt Date: 20210326
  Transmission Date: 20210420
  Serious: Yes (Hospitalization)
  Sender: FDA-Public Use
  Company Number: CN-BAXTER-2021BAX005575

PATIENT
  Age: 8 Year
  Sex: Female

DRUGS (6)
  1. PARAPLATIN [Suspect]
     Active Substance: CARBOPLATIN
     Dosage: DOSE REINTRODUCED?ICE CHEMOTHERAPY WITH IFOSFAMIDE + CARBOPLATIN+ ETOPOSIDE
     Route: 041
  2. HOLOXAN [Suspect]
     Active Substance: IFOSFAMIDE
     Indication: HEPATOBLASTOMA
     Dosage: DAY 1 TO DAY3,?ICE CHEMOTHERAPY WITH IFOSFAMIDE 1 GRAM + CARBOPLATIN 300 MG  + ETOPOSIDE 67 MG
     Route: 041
     Dates: start: 20210216, end: 20210218
  3. HOLOXAN [Suspect]
     Active Substance: IFOSFAMIDE
     Dosage: DOSE REINTRODUCED;?ICE CHEMOTHERAPY WITH IFOSFAMIDE + CARBOPLATIN+ ETOPOSIDE
     Route: 041
     Dates: start: 20210220, end: 20210221
  4. PARAPLATIN [Suspect]
     Active Substance: CARBOPLATIN
     Indication: HEPATOBLASTOMA
     Dosage: DAY 1,?ICE CHEMOTHERAPY WITH IFOSFAMIDE 1 GRAM + CARBOPLATIN 300 MG  + ETOPOSIDE 67 MG
     Route: 041
     Dates: start: 20210216, end: 20210216
  5. ETOPOSIDE. [Suspect]
     Active Substance: ETOPOSIDE
     Indication: HEPATOBLASTOMA
     Dosage: DAY 1 TO DAY3,?ICE CHEMOTHERAPY WITH IFOSFAMIDE 1 GRAM + CARBOPLATIN 300 MG  + ETOPOSIDE 67 MG
     Route: 041
     Dates: start: 20210216, end: 20210218
  6. ETOPOSIDE. [Suspect]
     Active Substance: ETOPOSIDE
     Dosage: DOSE REINTRODUCED?ICE CHEMOTHERAPY WITH IFOSFAMIDE + CARBOPLATIN+ ETOPOSIDE
     Route: 041

REACTIONS (2)
  - Altered state of consciousness [Recovered/Resolved]
  - Somnolence [Unknown]

NARRATIVE: CASE EVENT DATE: 20210217
